FAERS Safety Report 7490203-4 (Version None)
Quarter: 2011Q2

REPORT INFORMATION
  Report Type: 
  Country: None (occurrence: None)
  Receive Date: 20110512
  Receipt Date: 20110420
  Transmission Date: 20111010
  Serious: No
  Sender: FDA-Public Use
  Company Number: 2011R1-43965

PATIENT
  Age: 27 Year
  Sex: Female

DRUGS (7)
  1. TOPIRAMATE [Suspect]
     Indication: CONVULSION
     Dosage: ORAL
     Route: 048
  2. CARBAMAZEPINE [Suspect]
     Indication: CONVULSION
  3. LAMOTRIGINE [Suspect]
     Indication: CONVULSION
     Dosage: 200 MG,
  4. PHENYTOIN [Suspect]
     Indication: CONVULSION
  5. LEVETIRACETAM [Suspect]
     Indication: CONVULSION
  6. TIAGABINE HCL [Suspect]
     Indication: CONVULSION
  7. ZONISAMIDE [Suspect]
     Indication: CONVULSION
     Dosage: 100 MG, 2/1 DAY;

REACTIONS (1)
  - DRUG INEFFECTIVE [None]
